FAERS Safety Report 8190040-1 (Version None)
Quarter: 2012Q1

REPORT INFORMATION
  Report Type: 
  Country: None (occurrence: None)
  Receive Date: 20120307
  Receipt Date: 20120228
  Transmission Date: 20120608
  Serious: Yes (Hospitalization)
  Sender: FDA-Public Use
  Company Number: NL-JNJFOC-20120101546

PATIENT
  Sex: Female
  Weight: 56.02 kg

DRUGS (21)
  1. DOXORUBICIN HCL [Suspect]
     Route: 042
     Dates: start: 20110729
  2. RITUXIMAB [Suspect]
     Indication: DIFFUSE LARGE B-CELL LYMPHOMA
     Route: 042
     Dates: start: 20110729
  3. CYCLOPHOSPHAMIDE [Suspect]
     Indication: DIFFUSE LARGE B-CELL LYMPHOMA
     Route: 042
  4. ALENDRONIC ACID [Concomitant]
     Route: 065
  5. NEUPOGEN [Suspect]
     Indication: DIFFUSE LARGE B-CELL LYMPHOMA
     Route: 058
     Dates: start: 20110730
  6. FOLIUMZUUR [Concomitant]
     Route: 065
  7. NITROFURANTOIN [Concomitant]
     Route: 065
     Dates: start: 20110909, end: 20110917
  8. DOXORUBICIN HCL [Suspect]
     Indication: DIFFUSE LARGE B-CELL LYMPHOMA
     Route: 042
  9. RITUXIMAB [Suspect]
     Route: 042
  10. CYCLOPHOSPHAMIDE [Suspect]
     Route: 042
     Dates: start: 20110729
  11. FLUCONAZOLE [Concomitant]
     Route: 065
  12. VINCRISTINE [Suspect]
     Route: 042
  13. FUROSEMIDE [Concomitant]
     Route: 065
  14. BECLOMETHASONE DIPROPIONATE [Concomitant]
     Route: 065
  15. VINCRISTINE [Suspect]
     Indication: DIFFUSE LARGE B-CELL LYMPHOMA
     Route: 042
     Dates: start: 20110729
  16. TRAMADOL HYDROCHLORIDE [Concomitant]
     Route: 065
     Dates: start: 20110906, end: 20110917
  17. SULFASALAZINE [Concomitant]
     Route: 065
     Dates: end: 20110902
  18. PREDNISONE TAB [Suspect]
     Indication: DIFFUSE LARGE B-CELL LYMPHOMA
     Route: 048
  19. PREDNISONE TAB [Suspect]
     Route: 048
     Dates: start: 20110729
  20. NEUPOGEN [Suspect]
     Route: 058
  21. ENALAPRIL MALEATE [Concomitant]
     Route: 065

REACTIONS (1)
  - UROSEPSIS [None]
